FAERS Safety Report 19270246 (Version 1)
Quarter: 2021Q2

REPORT INFORMATION
  Report Type: Spontaneous
  Country: US (occurrence: US)
  Receive Date: 20210518
  Receipt Date: 20210518
  Transmission Date: 20210717
  Serious: Yes (Hospitalization)
  Sender: FDA-Public Use
  Company Number: None

PATIENT
  Age: 14 Year
  Sex: Male
  Weight: 77 kg

DRUGS (8)
  1. ETOPOSIDE. [Suspect]
     Active Substance: ETOPOSIDE
     Indication: HODGKIN^S DISEASE
     Route: 042
     Dates: start: 20190123, end: 20190125
  2. BLEOMYCIN 10 UNITS/M2 IV DAYS 1 AND 8, REPEAT Q21D X CYCLES [Concomitant]
     Dates: start: 20190123, end: 20190417
  3. DEXRAZOXANE 250 MG/M2 IV DAYS 1?2, REPEAT Q21D X4 CYCLES [Concomitant]
     Dates: start: 20190123, end: 20190417
  4. ETOPOSIDE. [Suspect]
     Active Substance: ETOPOSIDE
     Indication: HODGKIN^S DISEASE
     Route: 042
     Dates: start: 20190213, end: 20190213
  5. NEULASTA 6MG SUBQ Q21DAYS X4 DOSES [Concomitant]
     Dates: start: 20190123, end: 20190417
  6. DOXORUBICIN 25 MG/M2 IV DAYS 1?2, REPEAT Q21D X4 CYCLES [Concomitant]
     Dates: start: 20190123, end: 20190417
  7. CYCLOPHOSPHAMIDE 600 MG/M2 IV DAYS 1?2, REPEAT Q21D X4 CYCLES [Concomitant]
     Dates: start: 20190123, end: 20190417
  8. VINCRISTINE 1.4 MG/M2 IV DAYS 1 AND 8, REPEAT EVERY 21 DAYS X4 CYCLES [Concomitant]
     Dates: start: 20190123, end: 20190417

REACTIONS (5)
  - Infusion related reaction [None]
  - Chest discomfort [None]
  - Dyspnoea [None]
  - Cough [None]
  - Abdominal pain [None]

NARRATIVE: CASE EVENT DATE: 20190213
